FAERS Safety Report 18104953 (Version 3)
Quarter: 2020Q3

REPORT INFORMATION
  Report Type: Report from Study
  Country: None (occurrence: US)
  Receive Date: 20200804
  Receipt Date: 20200917
  Transmission Date: 20201103
  Serious: Yes (Hospitalization, Other)
  Sender: FDA-Public Use
  Company Number: US-ABBVIE-20K-163-3506091-00

PATIENT
  Age: 62 Year
  Sex: Male
  Weight: 94.43 kg

DRUGS (5)
  1. PRAVASTATIN. [Concomitant]
     Active Substance: PRAVASTATIN
     Indication: BLOOD CHOLESTEROL INCREASED
  2. HUMIRA [Suspect]
     Active Substance: ADALIMUMAB
     Indication: RHEUMATOID ARTHRITIS
     Route: 058
     Dates: start: 2016
  3. CELEBREX [Suspect]
     Active Substance: CELECOXIB
     Dosage: AT LOWER DOSE
     Route: 065
     Dates: start: 2020, end: 2020
  4. CELEBREX [Suspect]
     Active Substance: CELECOXIB
     Dosage: DECREASED DOSE TO EITHER 250MG OR 500MG
     Route: 065
     Dates: start: 2020
  5. CELEBREX [Suspect]
     Active Substance: CELECOXIB
     Indication: ARTHRITIS
     Route: 065
     Dates: end: 202005

REACTIONS (12)
  - Cardiac disorder [Unknown]
  - Nail discolouration [Unknown]
  - Diverticulitis [Unknown]
  - Heart rate irregular [Not Recovered/Not Resolved]
  - Blood potassium decreased [Recovering/Resolving]
  - Viral infection [Recovered/Resolved]
  - Dehydration [Recovered/Resolved]
  - Nasopharyngitis [Unknown]
  - Illness [Recovered/Resolved]
  - Pancreatic failure [Recovered/Resolved]
  - Renal impairment [Recovered/Resolved]
  - Unevaluable event [Not Recovered/Not Resolved]

NARRATIVE: CASE EVENT DATE: 2020
